FAERS Safety Report 12173690 (Version 1)
Quarter: 2016Q1

REPORT INFORMATION
  Report Type: Spontaneous
  Country: VE (occurrence: VE)
  Receive Date: 20160311
  Receipt Date: 20160311
  Transmission Date: 20160526
  Serious: Yes (Life-Threatening)
  Sender: FDA-Public Use
  Company Number: PHHY2016VE033233

PATIENT
  Sex: Male

DRUGS (1)
  1. FORADIL [Suspect]
     Active Substance: FORMOTEROL FUMARATE
     Indication: RESPIRATORY FAILURE
     Dosage: 24 UG, QD
     Route: 055
     Dates: start: 2014

REACTIONS (7)
  - Feeling abnormal [Not Recovered/Not Resolved]
  - Hypokinesia [Not Recovered/Not Resolved]
  - Product use issue [Unknown]
  - Fatigue [Not Recovered/Not Resolved]
  - Depression [Not Recovered/Not Resolved]
  - Malaise [Not Recovered/Not Resolved]
  - Dyspnoea [Not Recovered/Not Resolved]

NARRATIVE: CASE EVENT DATE: 2014
